FAERS Safety Report 16487903 (Version 1)
Quarter: 2019Q2

REPORT INFORMATION
  Report Type: Spontaneous
  Country: US (occurrence: US)
  Receive Date: 20190627
  Receipt Date: 20190627
  Transmission Date: 20190711
  Serious: Yes (Other)
  Sender: FDA-Public Use
  Company Number: US-TEVA-2019-US-1065946

PATIENT
  Sex: Male

DRUGS (2)
  1. LOSARTAN. [Suspect]
     Active Substance: LOSARTAN
     Indication: HYDRONEPHROSIS
  2. LOSARTAN. [Suspect]
     Active Substance: LOSARTAN
     Indication: RENAL DISORDER
     Route: 065

REACTIONS (2)
  - Recalled product administered [Unknown]
  - Hernia [Unknown]
